FAERS Safety Report 4273479-6 (Version None)
Quarter: 2004Q1

REPORT INFORMATION
  Report Type: 
  Country: None (occurrence: None)
  Receive Date: 20040114
  Receipt Date: 20031229
  Transmission Date: 20041129
  Serious: Yes (Other)
  Sender: FDA-Public Use
  Company Number: 2003-DE-06487GD (0)

PATIENT
  Age: 68 Year
  Sex: Male

DRUGS (4)
  1. PREDNISONE [Suspect]
     Indication: APLASIA PURE RED CELL
     Dosage: 100 MG
  2. CYCLOPHOSPHAMIDE [Suspect]
     Indication: APLASIA PURE RED CELL
     Dosage: 100 MG
  3. IMMUNE GLOBULIN INTRAVENOUS (HUMAN) [Suspect]
     Indication: APLASIA PURE RED CELL
     Dosage: 1 G/KG/D, IV
     Route: 042
  4. CYCLOSPORINE [Suspect]
     Indication: APLASIA PURE RED CELL
     Dosage: 600 MG (300 MG)

REACTIONS (1)
  - DRUG INEFFECTIVE [None]
